FAERS Safety Report 19426361 (Version 2)
Quarter: 2021Q3

REPORT INFORMATION
  Report Type: Spontaneous
  Country: US (occurrence: US)
  Receive Date: 20210617
  Receipt Date: 20210716
  Transmission Date: 20211014
  Serious: Yes (Other)
  Sender: FDA-Public Use
  Company Number: US-AUROBINDO-AUR-APL-2021-025133

PATIENT
  Age: 47 Year
  Sex: Female

DRUGS (1)
  1. IBUPROFEN. [Suspect]
     Active Substance: IBUPROFEN
     Indication: DYSMENORRHOEA
     Dosage: 400 MILLIGRAM
     Route: 065

REACTIONS (12)
  - Muscular weakness [Unknown]
  - Lethargy [Unknown]
  - Hemiparesis [Recovered/Resolved]
  - Paraesthesia [Unknown]
  - Encephalopathy [Recovering/Resolving]
  - Hypotension [Unknown]
  - Disorientation [Unknown]
  - Pyrexia [Unknown]
  - Headache [Unknown]
  - Conjunctival hyperaemia [Unknown]
  - Oedema [Unknown]
  - Vision blurred [Unknown]
